FAERS Safety Report 6638548-1 (Version None)
Quarter: 2010Q1

REPORT INFORMATION
  Report Type: 
  Country: None (occurrence: None)
  Receive Date: 20100317
  Receipt Date: 20100310
  Transmission Date: 20100710
  Serious: Yes (Other)
  Sender: FDA-Public Use
  Company Number: CA-MERCK-1003USA01745

PATIENT
  Age: 78 Year
  Sex: Female

DRUGS (5)
  1. ZETIA [Suspect]
     Route: 048
  2. CALCIUM (UNSPECIFIED) AND MAGNESIUM (UNSPECIFIED) AND VITAMIN D (UNSPE [Concomitant]
     Route: 048
  3. ADALAT [Concomitant]
     Route: 065
  4. DIDRONEL [Concomitant]
     Route: 048
  5. CHONDROITIN SULFATE SODIUM AND DIMETHYL SULFONE AND GLUCOSAMINE [Concomitant]
     Route: 048

REACTIONS (7)
  - APHASIA [None]
  - ASTHENIA [None]
  - CHEST DISCOMFORT [None]
  - DRY MOUTH [None]
  - DYSPHAGIA [None]
  - MYALGIA [None]
  - TONGUE DISORDER [None]
